FAERS Safety Report 12951474 (Version 1)
Quarter: 2016Q4

REPORT INFORMATION
  Report Type: Other
  Country: US (occurrence: US)
  Receive Date: 20161117
  Receipt Date: 20161117
  Transmission Date: 20170207
  Serious: Yes (Other)
  Sender: FDA-Public Use
  Company Number: US-WARNER CHILCOTT, LLC-1059671

PATIENT
  Age: 57 Year
  Sex: Female
  Weight: 96.32 kg

DRUGS (20)
  1. HYDROCODONE BITARTRATE AND ACETAMINOPHEN [Concomitant]
     Active Substance: ACETAMINOPHEN\HYDROCODONE BITARTRATE
  2. LORAZEPAM. [Concomitant]
     Active Substance: LORAZEPAM
  3. MAGNESIUM [Concomitant]
     Active Substance: MAGNESIUM
  4. MONTELUKAST [Concomitant]
     Active Substance: MONTELUKAST SODIUM
  5. OXYBUTYNIN [Concomitant]
     Active Substance: OXYBUTYNIN
  6. ENABLEX [Suspect]
     Active Substance: DARIFENACIN HYDROBROMIDE
     Route: 048
  7. CHOLECALCIFEROL [Concomitant]
     Active Substance: CHOLECALCIFEROL
  8. TRAZODONE [Concomitant]
     Active Substance: TRAZODONE HYDROCHLORIDE
  9. ZOLPIDEM [Concomitant]
     Active Substance: ZOLPIDEM\ZOLPIDEM TARTRATE
  10. VITAMIN B12 [Concomitant]
     Active Substance: CYANOCOBALAMIN
  11. BETASERON [Concomitant]
     Active Substance: INTERFERON BETA-1B
  12. LANSOPRAZOLE. [Concomitant]
     Active Substance: LANSOPRAZOLE
  13. BACLOFEN. [Concomitant]
     Active Substance: BACLOFEN
  14. CLOTRIMAZOLE. [Concomitant]
     Active Substance: CLOTRIMAZOLE
  15. CARAFATE [Concomitant]
     Active Substance: SUCRALFATE
  16. ASPIRIN. [Concomitant]
     Active Substance: ASPIRIN
  17. SPIRONOLACTONE. [Concomitant]
     Active Substance: SPIRONOLACTONE
  18. CALCIUM CARBONATE. [Concomitant]
     Active Substance: CALCIUM CARBONATE
  19. PANTOPRAZOLE [Concomitant]
     Active Substance: PANTOPRAZOLE SODIUM
  20. VENLAFAXINE [Concomitant]
     Active Substance: VENLAFAXINE HYDROCHLORIDE

REACTIONS (28)
  - Pollakiuria [Unknown]
  - Vision blurred [Unknown]
  - Ocular hyperaemia [Unknown]
  - Temperature intolerance [Unknown]
  - Urinary incontinence [Unknown]
  - Pruritus [Unknown]
  - Muscle spasticity [Unknown]
  - Eye pain [Unknown]
  - Insomnia [Unknown]
  - Herpes zoster [Unknown]
  - Hypoaesthesia [Unknown]
  - Muscular weakness [Unknown]
  - Weight decreased [Unknown]
  - Amnesia [Unknown]
  - Tinnitus [Unknown]
  - Snoring [Unknown]
  - Sleep talking [Unknown]
  - Fall [Unknown]
  - Contusion [Unknown]
  - Rhinorrhoea [Unknown]
  - Photophobia [Unknown]
  - Fatigue [Unknown]
  - Eye pruritus [Unknown]
  - Thirst [Unknown]
  - Tremor [Unknown]
  - Gait disturbance [Unknown]
  - Intracranial aneurysm [Unknown]
  - Anal incontinence [Unknown]

NARRATIVE: CASE EVENT DATE: 201407
